FAERS Safety Report 9974297 (Version 1)
Quarter: 2014Q1

REPORT INFORMATION
  Report Type: Spontaneous
  Country: US (occurrence: US)
  Receive Date: 20140306
  Receipt Date: 20140306
  Transmission Date: 20141002
  Serious: No
  Sender: FDA-Public Use
  Company Number: US-ABBVIE-13P-163-1158850-00

PATIENT
  Age: 31 Year
  Sex: Male
  Weight: 66.74 kg

DRUGS (4)
  1. HUMIRA [Suspect]
     Indication: CROHN^S DISEASE
     Dosage: LOADING DOSE
     Dates: start: 20121102, end: 20121102
  2. HUMIRA [Suspect]
     Dosage: SECOND DOSE
     Dates: start: 20121117, end: 20121117
  3. HUMIRA [Suspect]
     Dates: start: 20121202, end: 201305
  4. HUMIRA [Suspect]
     Dates: start: 20130618

REACTIONS (2)
  - Myalgia [Not Recovered/Not Resolved]
  - Crohn^s disease [Recovered/Resolved]
